FAERS Safety Report 6022409-5 (Version None)
Quarter: 2008Q4

REPORT INFORMATION
  Report Type: 
  Country: None (occurrence: None)
  Receive Date: 20081223
  Receipt Date: 20081223
  Transmission Date: 20090506
  Serious: Yes (Other)
  Sender: FDA-Public Use
  Company Number: None

PATIENT
  Age: 80 Year
  Sex: Male
  Weight: 77.1115 kg

DRUGS (1)
  1. GLYBURIDE AND METFORMIN HCL [Suspect]
     Indication: DIABETES MELLITUS
     Dosage: TWO TABLETS IN MORNING W/GLIPIZIDE 10MG
     Dates: start: 20080709, end: 20080830

REACTIONS (2)
  - BLOOD GLUCOSE INCREASED [None]
  - NO THERAPEUTIC RESPONSE [None]
